FAERS Safety Report 9977802 (Version 2)
Quarter: 2014Q1

REPORT INFORMATION
  Report Type: Report from Study
  Country: US (occurrence: US)
  Receive Date: 20140306
  Receipt Date: 20140306
  Transmission Date: 20141002
  Serious: No
  Sender: FDA-Public Use
  Company Number: US-ABBVIE-12P-163-0945148-00

PATIENT
  Age: 55 Year
  Sex: Female
  Weight: 85.35 kg

DRUGS (14)
  1. HUMIRA 40 MG/0.8 ML PEN [Suspect]
     Indication: RHEUMATOID ARTHRITIS
     Route: 058
     Dates: start: 201109, end: 201201
  2. HUMIRA 40 MG/0.8 ML PEN [Suspect]
     Route: 058
     Dates: start: 201203, end: 20130908
  3. HUMIRA 40 MG/0.8 ML PEN [Suspect]
     Dates: start: 20131020
  4. IPRATROPIUM BROMIDE/ALBUTEROL SULFATE [Suspect]
     Indication: ASTHMA
     Dates: start: 20130923, end: 20131020
  5. ALLEGRA [Concomitant]
     Indication: ASTHMA
  6. ACIDOPHILUS [Concomitant]
     Indication: PRODUCT USED FOR UNKNOWN INDICATION
  7. OMEPRAZOLE [Concomitant]
     Indication: GASTRIC DISORDER
  8. LISINOPRIL [Concomitant]
     Indication: HYPERTENSION
     Dosage: 10-12.5 MG DAILY
  9. CYMBALTA [Concomitant]
     Indication: DEPRESSION
  10. CYMBALTA [Concomitant]
     Indication: RHEUMATOID ARTHRITIS
  11. VITAMIN D3 [Concomitant]
     Indication: VITAMIN D DECREASED
  12. ZOLPIDEM [Concomitant]
     Indication: INSOMNIA
     Dosage: AT BEDTIME
  13. CLARINEX [Concomitant]
     Indication: SEASONAL ALLERGY
  14. POTASSIUM [Concomitant]
     Indication: PRODUCT USED FOR UNKNOWN INDICATION

REACTIONS (13)
  - Cough [Unknown]
  - Influenza [Recovered/Resolved]
  - Herpes zoster [Recovered/Resolved]
  - Asthma [Recovered/Resolved]
  - Night sweats [Not Recovered/Not Resolved]
  - Hot flush [Not Recovered/Not Resolved]
  - Sinusitis [Not Recovered/Not Resolved]
  - Headache [Not Recovered/Not Resolved]
  - Eye pain [Not Recovered/Not Resolved]
  - Asthma [Not Recovered/Not Resolved]
  - Insomnia [Not Recovered/Not Resolved]
  - Arthralgia [Not Recovered/Not Resolved]
  - Muscle spasms [Not Recovered/Not Resolved]
